FAERS Safety Report 8409472-9 (Version None)
Quarter: 2012Q2

REPORT INFORMATION
  Report Type: 
  Country: None (occurrence: None)
  Receive Date: 20120605
  Receipt Date: 20120601
  Transmission Date: 20120825
  Serious: Yes (Other)
  Sender: FDA-Public Use
  Company Number: US-AMGEN-USASP2012034395

PATIENT
  Age: 91 Year
  Sex: Male

DRUGS (6)
  1. OTHER ANTIHYPERTENSIVES [Concomitant]
  2. ARANESP [Suspect]
     Dosage: 100 MUG, EVERY 20 DAYS
  3. NORVASC [Concomitant]
  4. ARANESP [Suspect]
     Indication: ANAEMIA
     Dosage: 60 MUG, EVERY 12 TO 14 DAYS
     Dates: start: 20100101
  5. PROSCAR [Concomitant]
  6. METOPROLOL TARTRATE [Concomitant]

REACTIONS (5)
  - HAEMOGLOBIN DECREASED [None]
  - NEUROPATHY PERIPHERAL [None]
  - OESOPHAGEAL DISORDER [None]
  - HAEMATOCRIT DECREASED [None]
  - HYPOTENSION [None]
